FAERS Safety Report 8462702-X (Version None)
Quarter: 2012Q2

REPORT INFORMATION
  Report Type: 
  Country: None (occurrence: None)
  Receive Date: 20120625
  Receipt Date: 20120618
  Transmission Date: 20120825
  Serious: Yes (Other)
  Sender: FDA-Public Use
  Company Number: IT-ELI_LILLY_AND_COMPANY-IT201206005451

PATIENT
  Age: 67 Year
  Sex: Female

DRUGS (6)
  1. SIMVASTATIN [Concomitant]
     Dosage: 20 MG, UNK
  2. LOSARTAN POTASSIUM [Concomitant]
     Dosage: 100 MG, UNK
  3. ATENOLOL [Concomitant]
  4. GASTROLOC [Concomitant]
     Indication: HYPERTENSION
  5. ASPIRIN [Concomitant]
  6. FORTEO [Suspect]
     Dosage: UNK, UNKNOWN
     Route: 065
     Dates: start: 20111101

REACTIONS (3)
  - RENAL IMPAIRMENT [None]
  - RENAL VESSEL DISORDER [None]
  - BLOOD CREATININE INCREASED [None]
